FAERS Safety Report 20626593 (Version 1)
Quarter: 2022Q1

REPORT INFORMATION
  Report Type: Spontaneous
  Country: US (occurrence: None)
  Receive Date: 20220322
  Receipt Date: 20220322
  Transmission Date: 20220424
  Serious: No
  Sender: FDA-Public Use
  Company Number: None

PATIENT
  Age: 90 Year
  Sex: Male
  Weight: 74.84 kg

DRUGS (1)
  1. CLONIDINE HYDROCHLORIDE [Suspect]
     Active Substance: CLONIDINE HYDROCHLORIDE
     Indication: Hypertension
     Dosage: OTHER FREQUENCY : 3/DAY;?
     Route: 048
     Dates: start: 20211120, end: 20220208

REACTIONS (4)
  - Asthenia [None]
  - Pain [None]
  - Influenza like illness [None]
  - Dry mouth [None]

NARRATIVE: CASE EVENT DATE: 20220208
